FAERS Safety Report 22627942 (Version 14)
Quarter: 2025Q1

REPORT INFORMATION
  Report Type: Report from Study
  Country: CA (occurrence: CA)
  Receive Date: 20230622
  Receipt Date: 20250219
  Transmission Date: 20250408
  Serious: Yes (Hospitalization, Other)
  Sender: TAKEDA
  Company Number: CA-TAKEDA-2023TUS060559

PATIENT
  Age: 74 Year
  Sex: Female

DRUGS (40)
  1. VEDOLIZUMAB [Suspect]
     Active Substance: VEDOLIZUMAB
     Indication: Colitis ulcerative
  2. VEDOLIZUMAB [Suspect]
     Active Substance: VEDOLIZUMAB
  3. VEDOLIZUMAB [Suspect]
     Active Substance: VEDOLIZUMAB
  4. VEDOLIZUMAB [Suspect]
     Active Substance: VEDOLIZUMAB
  5. VEDOLIZUMAB [Suspect]
     Active Substance: VEDOLIZUMAB
  6. VEDOLIZUMAB [Suspect]
     Active Substance: VEDOLIZUMAB
  7. VEDOLIZUMAB [Suspect]
     Active Substance: VEDOLIZUMAB
  8. VEDOLIZUMAB [Suspect]
     Active Substance: VEDOLIZUMAB
  9. VEDOLIZUMAB [Suspect]
     Active Substance: VEDOLIZUMAB
     Dosage: 300 MILLIGRAM, Q4WEEKS
     Dates: start: 20230725
  10. VEDOLIZUMAB [Suspect]
     Active Substance: VEDOLIZUMAB
     Dosage: 300 MILLIGRAM, Q4WEEKS
  11. VEDOLIZUMAB [Suspect]
     Active Substance: VEDOLIZUMAB
     Dosage: 300 MILLIGRAM, Q4WEEKS
  12. VEDOLIZUMAB [Suspect]
     Active Substance: VEDOLIZUMAB
     Dosage: 300 MILLIGRAM, Q4WEEKS
  13. VEDOLIZUMAB [Suspect]
     Active Substance: VEDOLIZUMAB
     Indication: Colitis ulcerative
     Dosage: 108 MILLIGRAM, Q2WEEKS
     Dates: start: 2024
  14. PANTOPRAZOLE SODIUM [Suspect]
     Active Substance: PANTOPRAZOLE SODIUM
     Indication: Product used for unknown indication
  15. SERTRALINE [Concomitant]
     Active Substance: SERTRALINE HYDROCHLORIDE
  16. PANTOPRAZOLE [Concomitant]
     Active Substance: PANTOPRAZOLE
  17. ATORVASTATIN [Concomitant]
     Active Substance: ATORVASTATIN
  18. CLONAZEPAM [Concomitant]
     Active Substance: CLONAZEPAM
  19. ESCITALOPRAM [Concomitant]
     Active Substance: ESCITALOPRAM OXALATE
  20. TYLENOL EXTRA STRENGTH [Concomitant]
     Active Substance: ACETAMINOPHEN
  21. CALCIUM [Concomitant]
     Active Substance: CALCIUM
  22. VITAMIN D3 [Concomitant]
     Active Substance: CHOLECALCIFEROL
  23. IRON [Concomitant]
     Active Substance: IRON
  24. Salofalk [Concomitant]
     Dosage: UNK UNK, BID
     Dates: start: 20170103
  25. Salofalk [Concomitant]
  26. Salofalk [Concomitant]
  27. TRELEGY ELLIPTA [Concomitant]
     Active Substance: FLUTICASONE FUROATE\UMECLIDINIUM BROMIDE\VILANTEROL TRIFENATATE
  28. ATIVAN [Concomitant]
     Active Substance: LORAZEPAM
  29. ZOPICLONE [Concomitant]
     Active Substance: ZOPICLONE
  30. OXYBUTYNIN [Concomitant]
     Active Substance: OXYBUTYNIN
  31. GABAPENTIN [Concomitant]
     Active Substance: GABAPENTIN
  32. NIFEDIPINE [Concomitant]
     Active Substance: NIFEDIPINE
  33. PERINDOPRIL [Concomitant]
     Active Substance: PERINDOPRIL
  34. SPIRIVA [Concomitant]
     Active Substance: TIOTROPIUM BROMIDE MONOHYDRATE
  35. SYMBICORT [Concomitant]
     Active Substance: BUDESONIDE\FORMOTEROL FUMARATE DIHYDRATE
  36. DILAUDID [Concomitant]
     Active Substance: HYDROMORPHONE HYDROCHLORIDE
  37. METOCLOPRAMIDE [Concomitant]
     Active Substance: METOCLOPRAMIDE
  38. CETIRIZINE HYDROCHLORIDE [Concomitant]
     Active Substance: CETIRIZINE HYDROCHLORIDE
  39. PREDNISONE [Concomitant]
     Active Substance: PREDNISONE
  40. MYRBETRIQ [Concomitant]
     Active Substance: MIRABEGRON

REACTIONS (19)
  - Colitis ulcerative [Recovered/Resolved]
  - Fall [Unknown]
  - Asthenia [Unknown]
  - Pneumonia [Recovered/Resolved]
  - Nasopharyngitis [Unknown]
  - Malaise [Unknown]
  - Respiratory tract congestion [Unknown]
  - Feeding disorder [Unknown]
  - Nasal injury [Unknown]
  - Head injury [Unknown]
  - Clostridium test positive [Unknown]
  - Decubitus ulcer [Unknown]
  - Pain [Unknown]
  - Off label use [Unknown]
  - Illness [Unknown]
  - Infection [Unknown]
  - Dyspnoea [Unknown]
  - Back pain [Unknown]
  - Pain in extremity [Unknown]

NARRATIVE: CASE EVENT DATE: 20230405
